FAERS Safety Report 23309965 (Version 1)
Quarter: 2023Q4

REPORT INFORMATION
  Report Type: Spontaneous
  Country: GB (occurrence: GB)
  Receive Date: 20231218
  Receipt Date: 20231218
  Transmission Date: 20240109
  Serious: Yes (Other)
  Sender: FDA-Public Use
  Company Number: None

PATIENT
  Age: 56 Year

DRUGS (26)
  1. CIPROFLOXACIN [Suspect]
     Active Substance: CIPROFLOXACIN
     Indication: Product used for unknown indication
     Dosage: 500 MILLIGRAM, BID
     Route: 048
     Dates: start: 20230615, end: 20230617
  2. CIPROFLOXACIN [Suspect]
     Active Substance: CIPROFLOXACIN
     Dosage: 400 MILLIGRAM, BID (400MG IN 200ML INFUSION)
     Route: 042
     Dates: start: 20230617, end: 20230619
  3. FLOLAN [Concomitant]
     Active Substance: EPOPROSTENOL SODIUM
     Dosage: 1.4 MILLILITER, QH (CONTINOUS PUMP OVER 24 HOURS VIA HICKMAN LINE)
     Route: 065
  4. CALCIUM CARBONATE\CHOLECALCIFEROL [Concomitant]
     Active Substance: CALCIUM CARBONATE\CHOLECALCIFEROL
     Dosage: 1 DOSAGE FORM, BID (1500MG/400UNIT)
     Route: 065
  5. CLARITHROMYCIN [Concomitant]
     Active Substance: CLARITHROMYCIN
     Dosage: 10 MILLILITER, BID (250MG/5ML ORAL SUSPEN 10ML BD 7 DAYS (COMPLETE)
     Route: 065
     Dates: start: 20230515, end: 20230521
  6. CLARITHROMYCIN [Concomitant]
     Active Substance: CLARITHROMYCIN
     Dosage: 500 MILLIGRAM, BID (500MG TABS 1 BD (DID NOT COMPLETE)
     Route: 065
     Dates: start: 20230523
  7. IPRATROPIUM BROMIDE [Concomitant]
     Active Substance: IPRATROPIUM BROMIDE\IPRATROPIUM BROMIDE ANHYDROUS
     Dosage: UNK (1 OR 2 AS DIRECTED BY RESPIRATORY TEAM, MAX 4 TIMES A DAY 40 UNIT DOSE(RARELY USES)
     Route: 065
  8. CLOPIDOGREL [Concomitant]
     Active Substance: CLOPIDOGREL BISULFATE
     Dosage: 75 MILLIGRAM, QD
     Route: 065
  9. APIXABAN [Concomitant]
     Active Substance: APIXABAN
     Dosage: 2.5 MILLIGRAM, BID
     Route: 065
  10. PREDNISOLONE [Concomitant]
     Active Substance: PREDNISOLONE
     Dosage: UNK(6 A DAY FOR 5/7, 5 FOR 3/7, 4 FOR 3/7, 3 FOR 3/7, 2 FOR 3/7, 1 FOR 3/7 THEN MAINTENANCE DOSE )
     Route: 065
     Dates: start: 20230515
  11. BUMETANIDE [Concomitant]
     Active Substance: BUMETANIDE
     Dosage: 3 MILLIGRAM, BID
     Route: 065
  12. DAPAGLIFLOZIN [Concomitant]
     Active Substance: DAPAGLIFLOZIN
     Dosage: 10 MILLIGRAM, QD
     Route: 065
  13. RAMIPRIL [Concomitant]
     Active Substance: RAMIPRIL
     Dosage: 2.5 MILLIGRAM, BID
     Route: 065
  14. DOXYCYCLINE [Concomitant]
     Active Substance: DOXYCYCLINE
     Dosage: UNK, (TWO TO BE TAKEN ON THE FIRST DAY THEN ONE TO BE TAKEN EACH DAY (COMPLETED)
     Route: 065
     Dates: start: 20230515
  15. CITALOPRAM [Concomitant]
     Active Substance: CITALOPRAM HYDROBROMIDE
     Dosage: UNK, QD (10MG OR 20MG. ONE TO BE TAKEN EACH DAY)
     Route: 065
  16. QUININE SULFATE [Concomitant]
     Active Substance: QUININE SULFATE
     Dosage: 200 MILLIGRAM, HS
     Route: 065
     Dates: start: 20230607
  17. BISOPROLOL [Concomitant]
     Active Substance: BISOPROLOL\BISOPROLOL FUMARATE
     Dosage: 1.25 MILLIGRAM, BID
     Route: 065
  18. TADALAFIL [Concomitant]
     Active Substance: TADALAFIL
     Dosage: 10 MILLIGRAM, BID
     Route: 065
  19. ACETAMINOPHEN [Concomitant]
     Active Substance: ACETAMINOPHEN
     Dosage: UNK, QID (ONE OR TWO TO BE TAKEN EVERY 4-6 HOURS UP TO FOUR TIMES A DAY)
     Route: 065
  20. MORPHINE SULFATE [Concomitant]
     Active Substance: MORPHINE SULFATE
     Indication: Pain
     Dosage: 1.25 MILLILITER, PRN (0MG/5ML. 2.5ML EVERY 2 HOURS IF NEEDED (PT CURRENTLY TAKING 1.25ML PRN)
     Route: 065
     Dates: start: 20230607
  21. MORPHINE SULFATE [Concomitant]
     Active Substance: MORPHINE SULFATE
     Dosage: 2.5 MILLILITER, PRN (0MG/5ML. 2.5ML EVERY 2 HOURS IF NEEDED (PT CURRENTLY TAKING 1.25ML PRN)
     Route: 065
  22. ACETYLCYSTEINE [Concomitant]
     Active Substance: ACETYLCYSTEINE
     Dosage: 600 MILLIGRAM, QD (NOT USING PT BRINGING UP TOO MUCH FLUID)
     Route: 065
  23. LANSOPRAZOLE [Concomitant]
     Active Substance: LANSOPRAZOLE
     Indication: Oesophageal obstruction
     Dosage: 30 MILLIGRAM, BID (TO BE TAKEN TWICE-(PT TOLD SHE COULD TAKE UP TO TDS DUE TONARROWING IF THE OESOPH
     Route: 065
  24. DENOSUMAB [Concomitant]
     Active Substance: DENOSUMAB
     Dosage: UNK, (PATIENT HAS NOT HAD FOR OVER 3 YEARS AWAITING BONE DEX SCAN)
     Route: 065
  25. SPIRONOLACTONE [Concomitant]
     Active Substance: SPIRONOLACTONE
     Dosage: 250 MILLIGRAM, BID
     Route: 065
  26. CHOLECALCIFEROL [Concomitant]
     Active Substance: CHOLECALCIFEROL
     Dosage: 20000 INTERNATIONAL UNIT, MONTHLY
     Route: 065
     Dates: start: 20220613, end: 20230614

REACTIONS (1)
  - Raynaud^s phenomenon [Unknown]
